FAERS Safety Report 6733568-0 (Version None)
Quarter: 2010Q2

REPORT INFORMATION
  Report Type: 
  Country: None (occurrence: None)
  Receive Date: 20100520
  Receipt Date: 20100514
  Transmission Date: 20101027
  Serious: Yes (Hospitalization)
  Sender: FDA-Public Use
  Company Number: ES-ASTRAZENECA-2010SE22086

PATIENT
  Age: 73 Year
  Sex: Male

DRUGS (6)
  1. SEROQUEL [Suspect]
     Route: 048
  2. EMCONCOR [Interacting]
     Indication: ISCHAEMIC CARDIOMYOPATHY
     Route: 048
     Dates: start: 20080925, end: 20081026
  3. TAMSULOSIN HCL [Interacting]
     Route: 048
     Dates: end: 20081027
  4. ISCOVER [Concomitant]
     Indication: ISCHAEMIC CARDIOMYOPATHY
     Route: 048
     Dates: start: 20080925, end: 20081027
  5. ASPIRIN [Concomitant]
     Indication: ISCHAEMIC CARDIOMYOPATHY
     Route: 048
     Dates: start: 20080925
  6. NITROGLYCERIN [Concomitant]
     Indication: ISCHAEMIC CARDIOMYOPATHY
     Route: 062
     Dates: start: 20080925

REACTIONS (2)
  - DRUG INTERACTION [None]
  - SYNCOPE [None]
